FAERS Safety Report 19847800 (Version 7)
Quarter: 2023Q1

REPORT INFORMATION
  Report Type: Spontaneous
  Country: US (occurrence: US)
  Receive Date: 20210917
  Receipt Date: 20230323
  Transmission Date: 20230418
  Serious: Yes (Hospitalization, Disabling, Other)
  Sender: FDA-Public Use
  Company Number: US-PFIZER INC-2020160929

PATIENT
  Age: 67 Year
  Sex: Male
  Weight: 75.75 kg

DRUGS (3)
  1. XELJANZ XR [Suspect]
     Active Substance: TOFACITINIB CITRATE
     Indication: Rheumatoid arthritis
     Dosage: 11 MG, 1X/DAY
     Route: 048
     Dates: start: 20200327
  2. XELJANZ XR [Suspect]
     Active Substance: TOFACITINIB CITRATE
     Dosage: 11 MG, 1X/DAY
     Route: 048
  3. PLAVIX [Concomitant]
     Active Substance: CLOPIDOGREL BISULFATE
     Dosage: UNK

REACTIONS (14)
  - Autoimmune disorder [Unknown]
  - Hypoacusis [Unknown]
  - Limb discomfort [Unknown]
  - Rheumatoid arthritis [Unknown]
  - Gastrointestinal haemorrhage [Unknown]
  - Knee arthroplasty [Unknown]
  - Mental impairment [Unknown]
  - Diabetes mellitus [Unknown]
  - Depression [Unknown]
  - Weight decreased [Unknown]
  - Diet refusal [Unknown]
  - Back pain [Unknown]
  - Osteoporosis [Unknown]
  - Fall [Unknown]

NARRATIVE: CASE EVENT DATE: 20210101
